FAERS Safety Report 20154626 (Version 2)
Quarter: 2024Q2

REPORT INFORMATION
  Report Type: Other
  Country: IN (occurrence: None)
  Receive Date: 20211207
  Receipt Date: 20240528
  Transmission Date: 20240716
  Serious: Yes (Other)
  Sender: FDA-Public Use
  Company Number: IN-ROCHE-2964051

PATIENT
  Age: 66 Year
  Sex: Female
  Weight: 74.91 kg

DRUGS (7)
  1. OCREVUS [Suspect]
     Active Substance: OCRELIZUMAB
     Indication: Multiple sclerosis
     Route: 042
     Dates: start: 20200227, end: 20200227
  2. GABAPENTIN [Concomitant]
     Active Substance: GABAPENTIN
  3. MEMANTINE [Concomitant]
     Active Substance: MEMANTINE
  4. OXYBUTYNIN CHLORIDE [Concomitant]
     Active Substance: OXYBUTYNIN CHLORIDE
  5. RABEPRAZOLE SODIUM [Concomitant]
     Active Substance: RABEPRAZOLE SODIUM
  6. TRAZODONE [Concomitant]
     Active Substance: TRAZODONE HYDROCHLORIDE
  7. ZANAFLEX [Concomitant]
     Active Substance: TIZANIDINE HYDROCHLORIDE

REACTIONS (8)
  - Depressed level of consciousness [Unknown]
  - Emotional distress [Unknown]
  - Dizziness [Unknown]
  - Cognitive disorder [Unknown]
  - Dementia [Unknown]
  - Insomnia [Unknown]
  - Muscle spasms [Unknown]
  - Dermatitis atopic [Unknown]
